FAERS Safety Report 9608492 (Version 2)
Quarter: 2013Q4

REPORT INFORMATION
  Report Type: Spontaneous
  Country: BR (occurrence: BR)
  Receive Date: 20131009
  Receipt Date: 20131009
  Transmission Date: 20140711
  Serious: Yes (Other)
  Sender: FDA-Public Use
  Company Number: BR-SANOFI-AVENTIS-2012SA082473

PATIENT
  Age: 32 Year
  Sex: Female
  Weight: 74 kg

DRUGS (1)
  1. CLEXANE [Suspect]
     Indication: FOETAL PLACENTAL THROMBOSIS
     Dosage: STRENGTH: 40 MG
     Route: 065
     Dates: start: 20121106, end: 201301

REACTIONS (2)
  - Abortion spontaneous [Recovered/Resolved]
  - Exposure during pregnancy [Unknown]
